FAERS Safety Report 10932083 (Version 1)
Quarter: 2015Q1

REPORT INFORMATION
  Report Type: Spontaneous
  Country: US (occurrence: None)
  Receive Date: 20150128
  Receipt Date: 20150128
  Transmission Date: 20150721
  Serious: Yes (Other)
  Sender: FDA-Public Use
  Company Number: 2014TUS011295

PATIENT
  Sex: Female

DRUGS (1)
  1. BRINTELLIX [Suspect]
     Active Substance: VORTIOXETINE HYDROBROMIDE
     Indication: PRODUCT USED FOR UNKNOWN INDICATION
     Dosage: DURATION 14 DAYS

REACTIONS (6)
  - Hot flush [None]
  - Hyperhidrosis [None]
  - Crying [None]
  - Suicidal ideation [None]
  - Hypertension [None]
  - Constipation [None]
